FAERS Safety Report 21698983 (Version 24)
Quarter: 2023Q1

REPORT INFORMATION
  Report Type: Spontaneous
  Country: None (occurrence: GB)
  Receive Date: 20221208
  Receipt Date: 20230209
  Transmission Date: 20230417
  Serious: Yes (Hospitalization, Other)
  Sender: FDA-Public Use
  Company Number: GB-Therakind Limited-2135673

PATIENT
  Age: 68 Year
  Sex: Female
  Weight: 92 kg

DRUGS (1)
  1. METHOTREXATE [Suspect]
     Active Substance: METHOTREXATE
     Indication: Rheumatoid arthritis
     Dates: start: 20100917

REACTIONS (12)
  - Abdominal discomfort [Unknown]
  - Pulmonary pain [Unknown]
  - Amyloid arthropathy [Unknown]
  - Rash [Not Recovered/Not Resolved]
  - Lower respiratory tract infection [Not Recovered/Not Resolved]
  - Drug abuse [Unknown]
  - Intentional product misuse [Unknown]
  - Obesity [Unknown]
  - Overdose [Unknown]
  - Knee arthroplasty [Unknown]
  - Off label use [Unknown]
  - Product dose omission issue [Unknown]
